FAERS Safety Report 6960054-5 (Version None)
Quarter: 2010Q3

REPORT INFORMATION
  Report Type: 
  Country: None (occurrence: None)
  Receive Date: 20100901
  Receipt Date: 20100811
  Transmission Date: 20110219
  Serious: Yes (Other)
  Sender: FDA-Public Use
  Company Number: BR-BAYER-201013497LA

PATIENT
  Age: 32 Year
  Sex: Female

DRUGS (15)
  1. BETAFERON [Suspect]
     Indication: PROGRESSIVE MULTIPLE SCLEROSIS
     Dosage: TOTAL DAILY DOSE: 8 MIU
     Route: 058
     Dates: start: 20100406, end: 20100408
  2. BETAFERON [Suspect]
     Dosage: BETAJECT
     Route: 058
     Dates: start: 20100101
  3. BETAFERON [Suspect]
     Dosage: TOTAL DAILY DOSE: 0.25 ML
     Route: 058
     Dates: start: 20100408, end: 20100101
  4. BETAFERON [Suspect]
     Dosage: TOTAL DAILY DOSE: 8 MIU
     Route: 058
     Dates: start: 20100101
  5. RIVOTRIL [Concomitant]
     Indication: SLEEP DISORDER THERAPY
     Dosage: TOTAL DAILY DOSE: 2 MG  UNIT DOSE: 2 MG
     Route: 048
     Dates: start: 20100101, end: 20100101
  6. RIVOTRIL [Concomitant]
     Dosage: TOTAL DAILY DOSE: 3 DF
     Route: 048
  7. TYLEX [Concomitant]
     Indication: HEADACHE
     Dosage: TOTAL DAILY DOSE: 30 MG  UNIT DOSE: 30 MG
     Route: 048
     Dates: start: 20100101
  8. AMITRIPTYLINE HCL [Concomitant]
     Dosage: AS USED: 25 MG  UNIT DOSE: 25 MG
     Route: 048
  9. AMITRIPTYLINE HCL [Concomitant]
     Dosage: 6 TAB A DAY
     Route: 048
  10. AMITRIPTYLINE HCL [Concomitant]
     Dosage: AS USED: 25 MG  UNIT DOSE: 25 MG
     Route: 048
     Dates: start: 20090401
  11. TOPAMAX [Concomitant]
     Indication: HEADACHE
     Dosage: TOTAL DAILY DOSE: 50 MG  UNIT DOSE: 50 MG
     Route: 048
     Dates: start: 20090401
  12. FEMIANE [Concomitant]
     Indication: CONTRACEPTION
     Dosage: TOTAL DAILY DOSE: 1 DF
     Route: 048
     Dates: start: 20020101
  13. OMEPRAZOLE [Concomitant]
     Indication: PROPHYLAXIS
     Dosage: AS USED: 20 MG  UNIT DOSE: 20 MG
     Route: 048
     Dates: start: 20070101
  14. METHOTREXATE [Concomitant]
     Indication: IMMUNOSUPPRESSANT DRUG THERAPY
     Dosage: 3 DF PER WEEK
     Route: 048
     Dates: start: 20100503
  15. FLUOXETINE [Concomitant]
     Indication: DEPRESSION
     Route: 048
     Dates: start: 20060101

REACTIONS (16)
  - ABDOMINAL PAIN [None]
  - ARTHRALGIA [None]
  - DECREASED APPETITE [None]
  - DIARRHOEA [None]
  - HEADACHE [None]
  - HYPERHIDROSIS [None]
  - INFLUENZA [None]
  - INJECTION SITE ERYTHEMA [None]
  - INJECTION SITE PAIN [None]
  - MALAISE [None]
  - NAUSEA [None]
  - NECK PAIN [None]
  - PAIN [None]
  - PYREXIA [None]
  - SYNCOPE [None]
  - VOMITING [None]
